FAERS Safety Report 8465322-6 (Version None)
Quarter: 2012Q2

REPORT INFORMATION
  Report Type: 
  Country: None (occurrence: None)
  Receive Date: 20120626
  Receipt Date: 20120618
  Transmission Date: 20120825
  Serious: Yes (Hospitalization)
  Sender: FDA-Public Use
  Company Number: US-BAYER-2012-061855

PATIENT
  Age: 33 Year
  Sex: Female
  Weight: 93.1 kg

DRUGS (3)
  1. YASMIN [Suspect]
     Indication: CONTRACEPTION
  2. DROSPIRENONE AND ETHINYL ESTRADIOL [Suspect]
  3. SYNTHROID [Concomitant]
     Indication: HYPOTHYROIDISM
     Dosage: 137 MCG
     Route: 048

REACTIONS (2)
  - DEEP VEIN THROMBOSIS [None]
  - EMBOLISM VENOUS [None]
